FAERS Safety Report 9803309 (Version 1)
Quarter: 2014Q1

REPORT INFORMATION
  Report Type: Report from Study
  Country: BR (occurrence: BR)
  Receive Date: 20140108
  Receipt Date: 20140108
  Transmission Date: 20141002
  Serious: Yes (Life-Threatening)
  Sender: FDA-Public Use
  Company Number: PHHY2014BR001296

PATIENT
  Sex: Female
  Weight: 73 kg

DRUGS (2)
  1. TEGRETOL [Suspect]
     Indication: EPILEPSY
     Dosage: 1 DF, (1 DF IN THE MORNING AND 1 DF IN THE EVENING)
     Route: 048
     Dates: start: 1986, end: 1992
  2. DEPAKENE [Suspect]
     Indication: EPILEPSY
     Dosage: 1 DF, AT NIGHT
     Route: 048
     Dates: start: 1986, end: 1992

REACTIONS (9)
  - Brain neoplasm [Recovering/Resolving]
  - Petit mal epilepsy [Recovering/Resolving]
  - Cerebral ischaemia [Recovering/Resolving]
  - Amnesia [Recovering/Resolving]
  - Nodule [Recovering/Resolving]
  - Speech disorder [Recovering/Resolving]
  - Movement disorder [Recovering/Resolving]
  - Neoplasm recurrence [Recovering/Resolving]
  - Epilepsy [Recovering/Resolving]
